FAERS Safety Report 17148131 (Version 2)
Quarter: 2019Q4

REPORT INFORMATION
  Report Type: Spontaneous
  Country: JP (occurrence: JP)
  Receive Date: 20191212
  Receipt Date: 20191225
  Transmission Date: 20200122
  Serious: No
  Sender: FDA-Public Use
  Company Number: JP-ASTRAZENECA-2019SF79446

PATIENT
  Age: 15564 Day
  Sex: Female

DRUGS (6)
  1. CLARITHROMYCIN. [Concomitant]
     Active Substance: CLARITHROMYCIN
     Dosage: DOSE UNKNOWN
     Route: 065
  2. HEAVY MAGNESIUM OXIDE [Concomitant]
     Active Substance: MAGNESIUM OXIDE
     Dosage: DOSE UNKNOWN
     Route: 065
  3. THYRADIN S [Concomitant]
     Active Substance: LEVOTHYROXINE SODIUM
     Dosage: DOSE UNKNOWN
     Route: 065
  4. SYMBICORT [Suspect]
     Active Substance: BUDESONIDE\FORMOTEROL FUMARATE DIHYDRATE
     Indication: ASTHMA
     Route: 055
     Dates: start: 20191122, end: 20191122
  5. CODEINE PHOSPHATE HYDRATE [Concomitant]
     Active Substance: CODEINE PHOSPHATE
     Dosage: DOSE UNKNOWN
     Route: 065
  6. AMBROXOL HYDROCHLORIDE [Concomitant]
     Active Substance: AMBROXOL HYDROCHLORIDE
     Dosage: DOSE UNKNOWN
     Route: 065

REACTIONS (2)
  - Palpitations [Recovering/Resolving]
  - Peripheral swelling [Recovering/Resolving]

NARRATIVE: CASE EVENT DATE: 20191122
